FAERS Safety Report 14726615 (Version 2)
Quarter: 2022Q1

REPORT INFORMATION
  Report Type: Other
  Country: FR (occurrence: None)
  Receive Date: 20180406
  Receipt Date: 20220211
  Transmission Date: 20220423
  Serious: Yes (Other)
  Sender: FDA-Public Use
  Company Number: FR-ROCHE-2102268

PATIENT

DRUGS (2)
  1. TOCILIZUMAB [Suspect]
     Active Substance: TOCILIZUMAB
     Indication: Rheumatoid arthritis
     Route: 042
  2. TOCILIZUMAB [Suspect]
     Active Substance: TOCILIZUMAB
     Indication: Rheumatoid arthritis
     Route: 058

REACTIONS (2)
  - Gastrointestinal perforation [Unknown]
  - Neutropenia [Unknown]
